FAERS Safety Report 7460617-7 (Version None)
Quarter: 2011Q2

REPORT INFORMATION
  Report Type: 
  Country: None (occurrence: None)
  Receive Date: 20110505
  Receipt Date: 20110428
  Transmission Date: 20111010
  Serious: Yes (Hospitalization, Other)
  Sender: FDA-Public Use
  Company Number: US-MYLANLABS-2011S1008595

PATIENT
  Age: 51 Year
  Sex: Female
  Weight: 79 kg

DRUGS (13)
  1. MAGNESIUM [Concomitant]
     Dates: start: 20091212
  2. POTASSIUM CHLORIDE [Concomitant]
     Dates: start: 20110101
  3. PROGRAF [Suspect]
     Indication: PROPHYLAXIS AGAINST TRANSPLANT REJECTION
     Dates: start: 20110301
  4. SIMVASTATIN [Concomitant]
     Dates: start: 20000101
  5. GLYBURIDE [Concomitant]
     Dates: start: 20070101
  6. AMLODIPINE BESYLATE [Concomitant]
     Dates: start: 19970101
  7. ZOCOR [Concomitant]
     Dates: start: 20091212
  8. TACROLIMUS [Suspect]
     Dates: start: 20110101, end: 20110301
  9. PRILOSEC [Concomitant]
     Dates: start: 19991212
  10. TACROLIMUS [Suspect]
     Indication: PROPHYLAXIS AGAINST TRANSPLANT REJECTION
     Dates: start: 20110101, end: 20110301
  11. RAPAMUNE [Concomitant]
     Dates: start: 20091212
  12. ASPIRIN [Concomitant]
     Dates: start: 20091212
  13. FUROSEMIDE [Concomitant]
     Dates: start: 19970101

REACTIONS (13)
  - DYSPNOEA [None]
  - OEDEMA PERIPHERAL [None]
  - SKIN ULCER [None]
  - EPISTAXIS [None]
  - MENORRHAGIA [None]
  - PANCREAS TRANSPLANT REJECTION [None]
  - KIDNEY TRANSPLANT REJECTION [None]
  - DRUG INEFFECTIVE [None]
  - DIALYSIS [None]
  - OEDEMA [None]
  - HEADACHE [None]
  - DRUG HYPERSENSITIVITY [None]
  - BLOOD PRESSURE INCREASED [None]
